FAERS Safety Report 8964627 (Version 2)
Quarter: 2013Q1

REPORT INFORMATION
  Report Type: Spontaneous
  Country: US (occurrence: US)
  Receive Date: 20121213
  Receipt Date: 20130103
  Transmission Date: 20140127
  Serious: Yes (Death, Hospitalization)
  Sender: FDA-Public Use
  Company Number: US-GILEAD-2012-0066155

PATIENT
  Sex: Male

DRUGS (12)
  1. LETAIRIS [Suspect]
     Indication: PORTOPULMONARY HYPERTENSION
     Dosage: 10 MG, QD
     Route: 048
     Dates: start: 20100712, end: 201211
  2. LETAIRIS [Suspect]
     Dosage: 10 MG, QD
     Dates: start: 20100712
  3. VIAGRA [Concomitant]
  4. DILAUDID [Concomitant]
  5. ALDACTONE                          /00006201/ [Concomitant]
  6. MEPHYTON [Concomitant]
  7. LACTULOSE [Concomitant]
  8. ATIVAN [Concomitant]
  9. FENTANYL [Concomitant]
  10. ZOFRAN                             /00955301/ [Concomitant]
  11. PRILOSEC                           /00661201/ [Concomitant]
  12. MUCINEX [Concomitant]

REACTIONS (6)
  - Hepatocellular carcinoma [Fatal]
  - Confusional state [Unknown]
  - Malignant neoplasm progression [Unknown]
  - Somnolence [Unknown]
  - Jaundice [Unknown]
  - Hepatic failure [Unknown]
